FAERS Safety Report 23476090 (Version 1)
Quarter: 2024Q1

REPORT INFORMATION
  Report Type: Report from Study
  Country: US (occurrence: US)
  Receive Date: 20240204
  Receipt Date: 20240204
  Transmission Date: 20240410
  Serious: No
  Sender: FDA-Public Use
  Company Number: US-EXELIXIS-CABO-23061977

PATIENT
  Age: 55 Year
  Sex: Male

DRUGS (1)
  1. CABOMETYX [Suspect]
     Active Substance: CABOZANTINIB S-MALATE
     Indication: Renal cancer
     Dosage: 60 MG, QD
     Route: 048
     Dates: start: 202303, end: 202303

REACTIONS (6)
  - Swollen tongue [Unknown]
  - Pharyngeal swelling [Unknown]
  - Tinnitus [Unknown]
  - Nausea [Unknown]
  - Blood pressure increased [Unknown]
  - Rash [Unknown]

NARRATIVE: CASE EVENT DATE: 20230301
